FAERS Safety Report 7793403-9 (Version None)
Quarter: 2011Q4

REPORT INFORMATION
  Report Type: 
  Country: None (occurrence: None)
  Receive Date: 20111003
  Receipt Date: 20110617
  Transmission Date: 20120403
  Serious: No
  Sender: FDA-Public Use
  Company Number: US-BAYER-2011-053048

PATIENT
  Age: 84 Year
  Sex: Female

DRUGS (5)
  1. VERAPAMIL [Concomitant]
  2. ZETIA [Concomitant]
  3. VITAMIN TAB [Concomitant]
  4. AVELOX [Suspect]
     Indication: LUNG INFECTION
     Dosage: 400 MG, QD
     Route: 048
     Dates: start: 20110615
  5. DIOVAN [Concomitant]

REACTIONS (1)
  - CHEST PAIN [None]
